FAERS Safety Report 7942323-5 (Version None)
Quarter: 2011Q4

REPORT INFORMATION
  Report Type: 
  Country: None (occurrence: None)
  Receive Date: 20111122
  Receipt Date: 20110726
  Transmission Date: 20120403
  Serious: Yes (Other)
  Sender: FDA-Public Use
  Company Number: PHHY2011US58765

PATIENT
  Age: 68 Year
  Sex: Male

DRUGS (19)
  1. AMPHETAMINE SULFATE [Concomitant]
  2. GILENYA [Suspect]
     Indication: MULTIPLE SCLEROSIS
     Dosage: 0.5 MG, QD, ORAL   0.5 MG, QD, ORAL
     Route: 048
     Dates: start: 20110629
  3. LIPITOR [Concomitant]
  4. ZETIA [Concomitant]
  5. MIRALAX [Concomitant]
  6. OXYGEN (OXYGEN) [Concomitant]
  7. RESTASIS (CICLOSPORIN) EYE DROPS [Concomitant]
  8. BACLOFEN [Concomitant]
  9. CYMBALTA [Concomitant]
  10. ALENDRONATE SODIUM [Concomitant]
  11. OXYBUTYNIN [Concomitant]
  12. DIAZEPAM [Concomitant]
  13. CELEXA [Concomitant]
  14. VICODIN [Concomitant]
  15. FISH OIL (FISH OIL) [Concomitant]
  16. GLYCEROL 2.6% [Concomitant]
  17. MULTIVITAMIN [Concomitant]
  18. NEXIUM [Concomitant]
  19. GILENYA [Suspect]

REACTIONS (5)
  - DRY MOUTH [None]
  - URTICARIA [None]
  - HERPES ZOSTER [None]
  - VISION BLURRED [None]
  - RASH [None]
